FAERS Safety Report 9493652 (Version 2)
Quarter: 2013Q4

REPORT INFORMATION
  Report Type: Report from Study
  Country: JP (occurrence: JP)
  Receive Date: 20130902
  Receipt Date: 20131001
  Transmission Date: 20140711
  Serious: Yes (Other)
  Sender: FDA-Public Use
  Company Number: JP-JNJFOC-20130813264

PATIENT
  Age: 71 Year
  Sex: Male
  Weight: 56 kg

DRUGS (12)
  1. ITRIZOLE [Suspect]
     Indication: FEBRILE NEUTROPENIA
     Route: 048
     Dates: start: 20130502, end: 20130503
  2. BAKTAR [Suspect]
     Indication: PROPHYLAXIS
     Route: 048
     Dates: start: 20130502, end: 20130503
  3. ALFAROL [Concomitant]
     Indication: OSTEOPOROSIS
     Route: 048
  4. ALLOID G [Concomitant]
     Indication: PROPHYLAXIS
     Route: 048
  5. GOODMIN [Concomitant]
     Indication: INSOMNIA
     Route: 048
  6. GLAKAY [Concomitant]
     Indication: OSTEOPOROSIS
     Route: 048
  7. SLOW-K [Concomitant]
     Indication: HYPOKALAEMIA
     Route: 048
  8. DOGMATYL [Concomitant]
     Indication: ANXIETY DISORDER
     Route: 048
  9. NEORAL [Concomitant]
     Indication: APLASTIC ANAEMIA
     Route: 048
  10. PARIET [Concomitant]
     Indication: PROPHYLAXIS
     Route: 048
  11. PRIMOBOLAN [Concomitant]
     Indication: FEBRILE NEUTROPENIA
     Route: 048
  12. RIZE [Concomitant]
     Indication: ANXIETY DISORDER
     Route: 048

REACTIONS (1)
  - Blood creatinine increased [Recovered/Resolved]
